FAERS Safety Report 14562208 (Version 1)
Quarter: 2018Q1

REPORT INFORMATION
  Report Type: Report from Study
  Country: BR (occurrence: BR)
  Receive Date: 20180222
  Receipt Date: 20180222
  Transmission Date: 20180509
  Serious: Yes (Hospitalization, Other)
  Sender: FDA-Public Use
  Company Number: PHHY2018BR029374

PATIENT
  Sex: Female
  Weight: 50 kg

DRUGS (5)
  1. RIVASTIGMINE. [Suspect]
     Active Substance: RIVASTIGMINE
     Indication: DEMENTIA ALZHEIMER^S TYPE
     Dosage: 0.5 DF (HALF MG, AS REPORTED), QD (12 YEARS AGO)
     Route: 048
  2. EXELON PATCH [Suspect]
     Active Substance: RIVASTIGMINE
     Indication: PRODUCT USED FOR UNKNOWN INDICATION
     Dosage: UNK
     Route: 062
     Dates: start: 20180213
  3. RIVASTIGMINE. [Suspect]
     Active Substance: RIVASTIGMINE
     Dosage: 1.5 DF, QD
     Route: 048
  4. RIVASTIGMINE. [Suspect]
     Active Substance: RIVASTIGMINE
     Dosage: 3 MG, QD (ABOUT 3 YEARS AGO AND SHE STOPPED AN AVERAGE OF 30 TO 40 DAYS) (GPT PROBE)
     Route: 048
  5. FLORATIL [Concomitant]
     Indication: PRODUCT USED FOR UNKNOWN INDICATION
     Dosage: UNK UNK, Q12H (FROM ALMOST A MONTH AGO)
     Route: 065

REACTIONS (7)
  - Diarrhoea [Recovering/Resolving]
  - Urinary tract infection [Recovering/Resolving]
  - Gastric disorder [Unknown]
  - Somnolence [Not Recovered/Not Resolved]
  - Vomiting [Recovering/Resolving]
  - Agitation [Not Recovered/Not Resolved]
  - Wrong technique in product usage process [Unknown]
